FAERS Safety Report 8295348-7 (Version None)
Quarter: 2012Q2

REPORT INFORMATION
  Report Type: 
  Country: None (occurrence: None)
  Receive Date: 20120418
  Receipt Date: 20120327
  Transmission Date: 20120825
  Serious: Yes (Other)
  Sender: FDA-Public Use
  Company Number: MX-BAXTER-2012BAX001172

PATIENT
  Sex: Male
  Weight: 95 kg

DRUGS (6)
  1. ENALAPRIL MALEATE [Concomitant]
     Indication: HYPERTENSION
     Route: 048
  2. DIANEAL [Suspect]
     Indication: PERITONEAL DIALYSIS
     Dosage: 1 BAG 4 TIMES PER DAY
     Route: 033
     Dates: start: 20120223
  3. ACETAMINOPHEN [Concomitant]
     Dosage: HALF TABLET DAILY
     Route: 048
  4. CARBAMAZEPINE [Concomitant]
     Dosage: HALF TABLET DAILY
     Route: 048
  5. ISORDIL [Concomitant]
     Dosage: HALF TABLET DAILY
     Route: 048
  6. METOPROLOL TARTRATE [Concomitant]
     Indication: HYPERTENSION
     Route: 048

REACTIONS (1)
  - INFECTIOUS PERITONITIS [None]
